FAERS Safety Report 11552796 (Version 1)
Quarter: 2015Q3

REPORT INFORMATION
  Report Type: Report from Study
  Country: US (occurrence: US)
  Receive Date: 20150925
  Receipt Date: 20150925
  Transmission Date: 20151125
  Serious: Yes (Hospitalization)
  Sender: FDA-Public Use
  Company Number: US-BIOGENIDEC-2015BI130074

PATIENT
  Age: 64 Year
  Sex: Female

DRUGS (11)
  1. VENLAFAXINE HCL [Concomitant]
     Active Substance: VENLAFAXINE HYDROCHLORIDE
  2. AMPYRA [Concomitant]
     Active Substance: DALFAMPRIDINE
  3. ATORVASTATIN [Concomitant]
     Active Substance: ATORVASTATIN
  4. TECFIDERA [Suspect]
     Active Substance: DIMETHYL FUMARATE
     Indication: MULTIPLE SCLEROSIS
     Route: 048
     Dates: start: 20150212
  5. MODAFINIL. [Concomitant]
     Active Substance: MODAFINIL
  6. BACLOFEN. [Concomitant]
     Active Substance: BACLOFEN
  7. METHENAMINE HIPPURATE. [Concomitant]
     Active Substance: METHENAMINE HIPPURATE
  8. TIZANIDINE. [Concomitant]
     Active Substance: TIZANIDINE
  9. GABAPENTIN. [Concomitant]
     Active Substance: GABAPENTIN
  10. ALENDRONATE [Concomitant]
     Active Substance: ALENDRONATE SODIUM
  11. AMANTADINE [Concomitant]
     Active Substance: AMANTADINE

REACTIONS (1)
  - Intervertebral disc protrusion [Unknown]
